FAERS Safety Report 10379032 (Version 1)
Quarter: 2014Q3

REPORT INFORMATION
  Report Type: Spontaneous
  Country: US (occurrence: CH)
  Receive Date: 20140812
  Receipt Date: 20140812
  Transmission Date: 20150326
  Serious: Yes (Hospitalization)
  Sender: FDA-Public Use
  Company Number: CH-FRI-1000069794

PATIENT
  Sex: Female
  Weight: 77.4 kg

DRUGS (15)
  1. PARIET [Concomitant]
     Active Substance: RABEPRAZOLE SODIUM
     Dosage: 40 MG
     Route: 048
     Dates: end: 201406
  2. ZANTAC [Concomitant]
     Active Substance: RANITIDINE HYDROCHLORIDE
     Dosage: 75 MG
     Route: 048
     Dates: end: 201406
  3. TEMESTA [Concomitant]
     Active Substance: LORAZEPAM
     Dosage: 5 MG
     Route: 048
  4. SEQUASE [Concomitant]
     Active Substance: QUETIAPINE FUMARATE
     Dosage: 100 MG
     Route: 048
  5. ELTROXIN [Concomitant]
     Active Substance: LEVOTHYROXINE
     Dosage: 0.05 MG
     Route: 048
  6. PRONTOLAX [Concomitant]
     Active Substance: BISACODYL
     Dosage: 12 DF
     Route: 048
  7. DAFALGAN [Concomitant]
     Active Substance: ACETAMINOPHEN
     Dosage: 1 GRAM/4 TIMES DAY
     Route: 048
  8. SEROQUEL [Concomitant]
     Active Substance: QUETIAPINE FUMARATE
     Dosage: 150 MG
     Route: 048
  9. CYMBALTA [Concomitant]
     Active Substance: DULOXETINE HYDROCHLORIDE
     Dosage: 60 MG
     Route: 048
  10. PANTOZOL [Concomitant]
     Active Substance: PANTOPRAZOLE SODIUM
     Dosage: 40 MG
     Route: 048
  11. LINACLOTIDE [Suspect]
     Active Substance: LINACLOTIDE
     Indication: IRRITABLE BOWEL SYNDROME
     Dosage: 290 MCG
     Route: 048
     Dates: start: 201406, end: 20140613
  12. TRITTICO [Concomitant]
     Active Substance: TRAZODONE HYDROCHLORIDE
     Dosage: 300 MG
     Route: 048
  13. VALDOXAN [Concomitant]
     Active Substance: AGOMELATINE
     Dosage: 50 MG
     Route: 048
  14. DUSPATALIN [Concomitant]
     Active Substance: MEBEVERINE HYDROCHLORIDE
     Dosage: 400 MG
     Route: 048
  15. TRANSIPEG [Concomitant]
     Active Substance: POLYETHYLENE GLYCOL 3350
     Dosage: 1 DOSAGE FORM
     Route: 048

REACTIONS (2)
  - Renal failure acute [Recovered/Resolved]
  - Dehydration [Recovered/Resolved]

NARRATIVE: CASE EVENT DATE: 20140613
